FAERS Safety Report 5212155-X (Version None)
Quarter: 2007Q1

REPORT INFORMATION
  Report Type: 
  Country: None (occurrence: None)
  Receive Date: 20070118
  Receipt Date: 20070109
  Transmission Date: 20070707
  Serious: Yes (Hospitalization, Other)
  Sender: FDA-Public Use
  Company Number: US-ABBOTT-07P-163-0355326-00

PATIENT
  Age: 35 Year
  Sex: Male

DRUGS (3)
  1. KALETRA [Suspect]
     Indication: HIV INFECTION
     Dosage: NOT REPORTED
     Dates: start: 20040313
  2. LAMIVUDINE [Suspect]
     Indication: HIV INFECTION
     Dosage: NOT REPORTED
     Dates: start: 20040313
  3. TENOFOVIR [Suspect]
     Indication: HIV INFECTION
     Dosage: NOT REPORTED
     Dates: start: 20040313

REACTIONS (4)
  - IMMUNE RECONSTITUTION SYNDROME [None]
  - LIVER DISORDER [None]
  - MENINGITIS TUBERCULOUS [None]
  - TUBERCULOSIS LIVER [None]
